FAERS Safety Report 4698135-1 (Version None)
Quarter: 2005Q2

REPORT INFORMATION
  Report Type: 
  Country: None (occurrence: None)
  Receive Date: 20050623
  Receipt Date: 20050610
  Transmission Date: 20051028
  Serious: Yes (Other)
  Sender: FDA-Public Use
  Company Number: PHBS2005US08418

PATIENT
  Age: 24 Year
  Sex: Female

DRUGS (4)
  1. METHYLDOPA [Concomitant]
  2. HYDROCORTISONE [Concomitant]
     Dosage: 25 MG/D
  3. INSULIN [Concomitant]
  4. METYRAPONE [Suspect]
     Indication: CUSHING'S SYNDROME
     Dosage: 500 MG/D
     Route: 065

REACTIONS (3)
  - DRUG EXPOSURE DURING PREGNANCY [None]
  - FOETAL GROWTH RETARDATION [None]
  - PRE-ECLAMPSIA [None]
